APPROVED DRUG PRODUCT: GEODON
Active Ingredient: ZIPRASIDONE MESYLATE
Strength: EQ 20MG BASE/VIAL
Dosage Form/Route: POWDER;INTRAMUSCULAR
Application: N020919 | Product #001 | TE Code: AP
Applicant: VIATRIS SPECIALTY LLC
Approved: Jun 21, 2002 | RLD: Yes | RS: Yes | Type: RX